FAERS Safety Report 18966350 (Version 1)
Quarter: 2021Q1

REPORT INFORMATION
  Report Type: Report from Study
  Country: US (occurrence: US)
  Receive Date: 20210303
  Receipt Date: 20210303
  Transmission Date: 20210420
  Serious: Yes (Other)
  Sender: FDA-Public Use
  Company Number: US-TEVA-2021-US-1871433

PATIENT
  Age: 18 Year
  Sex: Female

DRUGS (4)
  1. CLARAVIS [Suspect]
     Active Substance: ISOTRETINOIN
     Route: 065
  2. POTASSIUM [Concomitant]
     Active Substance: POTASSIUM
  3. ABSORICA [Suspect]
     Active Substance: ISOTRETINOIN
     Route: 065
  4. AMOXACILLIN [Concomitant]

REACTIONS (3)
  - Arthralgia [Unknown]
  - Tinnitus [Unknown]
  - Blindness [Unknown]

NARRATIVE: CASE EVENT DATE: 20201210
